FAERS Safety Report 23318970 (Version 1)
Quarter: 2023Q4

REPORT INFORMATION
  Report Type: Spontaneous
  Country: SA (occurrence: SA)
  Receive Date: 20231220
  Receipt Date: 20231220
  Transmission Date: 20240110
  Serious: Yes (Hospitalization)
  Sender: FDA-Public Use
  Company Number: SA-AMAROX PHARMA-HET2023SA03546

PATIENT
  Age: 16 Year
  Sex: Female

DRUGS (2)
  1. ARIPIPRAZOLE [Suspect]
     Active Substance: ARIPIPRAZOLE
     Indication: Suicide attempt
     Dosage: FOUR TABLETS OF ARIPIPRAZOLE 10 MILLIGRAM
     Route: 065
  2. ACETAMINOPHEN [Suspect]
     Active Substance: ACETAMINOPHEN
     Indication: Suicide attempt
     Dosage: 10 TABLETS OF PARACETAMOL 500 MILLIGRAM
     Route: 065

REACTIONS (2)
  - Oculogyric crisis [Recovered/Resolved]
  - Intentional overdose [Unknown]
